FAERS Safety Report 14680023 (Version 2)
Quarter: 2018Q2

REPORT INFORMATION
  Report Type: Spontaneous
  Country: ES (occurrence: ES)
  Receive Date: 20180326
  Receipt Date: 20180411
  Transmission Date: 20180711
  Serious: Yes (Disabling, Other)
  Sender: FDA-Public Use
  Company Number: ES-GILEAD-2017-0306358

PATIENT
  Age: 49 Year
  Sex: Male
  Weight: 70 kg

DRUGS (14)
  1. ETRAVIRINE [Concomitant]
     Active Substance: ETRAVIRINE
  2. RIBAVIRIN. [Suspect]
     Active Substance: RIBAVIRIN
     Indication: CHRONIC HEPATITIS C
     Dosage: UNK
     Route: 048
     Dates: start: 201505
  3. SIMEPREVIR [Suspect]
     Active Substance: SIMEPREVIR
     Dosage: UNK
     Route: 065
  4. SIMEPREVIR [Suspect]
     Active Substance: SIMEPREVIR
     Dosage: UNK
     Route: 065
  5. RALTEGRAVIR. [Concomitant]
     Active Substance: RALTEGRAVIR
     Indication: HIV INFECTION
     Dosage: DOSAGE FORM: UNSPECIFIED
     Route: 065
  6. SOVALDI [Suspect]
     Active Substance: SOFOSBUVIR
     Indication: HIV INFECTION
     Dosage: UNK
     Route: 065
  7. SOVALDI [Suspect]
     Active Substance: SOFOSBUVIR
     Dosage: UNK
     Route: 065
  8. SIMEPREVIR [Suspect]
     Active Substance: SIMEPREVIR
     Indication: CHRONIC HEPATITIS C
     Dosage: UNK
     Route: 065
     Dates: start: 201505
  9. ABACAVIR. [Concomitant]
     Active Substance: ABACAVIR
     Indication: HIV INFECTION
     Dosage: DOSAGE FORM: UNSPECIFIED
     Route: 065
  10. SIMEPREVIR [Suspect]
     Active Substance: SIMEPREVIR
     Indication: HIV INFECTION
     Dosage: UNK
     Route: 065
  11. SIMEPREVIR [Suspect]
     Active Substance: SIMEPREVIR
     Dosage: UNK
     Route: 065
  12. SOVALDI [Suspect]
     Active Substance: SOFOSBUVIR
     Indication: CHRONIC HEPATITIS C
     Dosage: UNK
     Route: 065
     Dates: start: 201505
  13. RIBAVIRIN. [Suspect]
     Active Substance: RIBAVIRIN
     Indication: HIV INFECTION
  14. LAMIVUDINE. [Concomitant]
     Active Substance: LAMIVUDINE
     Indication: HIV INFECTION
     Dosage: DOSAGE FORM: UNSPECIFIED
     Route: 065

REACTIONS (2)
  - Visual acuity reduced [Recovering/Resolving]
  - Choroiditis [Recovering/Resolving]

NARRATIVE: CASE EVENT DATE: 201507
